FAERS Safety Report 5805938-6 (Version None)
Quarter: 2008Q3

REPORT INFORMATION
  Report Type: 
  Country: None (occurrence: None)
  Receive Date: 20080710
  Receipt Date: 20080709
  Transmission Date: 20090109
  Serious: Yes (Other)
  Sender: FDA-Public Use
  Company Number: A0736637A

PATIENT

DRUGS (1)
  1. ALLI [Suspect]
     Indication: DRUG USE FOR UNKNOWN INDICATION

REACTIONS (1)
  - TYPE 2 DIABETES MELLITUS [None]
